FAERS Safety Report 7202834-7 (Version None)
Quarter: 2010Q4

REPORT INFORMATION
  Report Type: 
  Country: None (occurrence: None)
  Receive Date: 20101229
  Receipt Date: 20101221
  Transmission Date: 20110411
  Serious: Yes (Hospitalization)
  Sender: FDA-Public Use
  Company Number: CA-ELI_LILLY_AND_COMPANY-CA201012005503

PATIENT
  Age: 69 Year
  Sex: Female

DRUGS (7)
  1. FORTEO [Suspect]
     Indication: OSTEOPOROSIS
     Dosage: 20 UG, UNKNOWN
     Route: 058
     Dates: start: 20100105
  2. DURAGESIC-50 [Concomitant]
  3. GABAPENTIN [Concomitant]
  4. HYDROMORPHONE HCL [Concomitant]
  5. BISOPROLOL [Concomitant]
  6. MICARDIS [Concomitant]
  7. PREDNISONE [Concomitant]

REACTIONS (2)
  - INTESTINAL FUNCTIONAL DISORDER [None]
  - INTESTINAL RESECTION [None]
